FAERS Safety Report 7699394-3 (Version None)
Quarter: 2011Q3

REPORT INFORMATION
  Report Type: 
  Country: None (occurrence: None)
  Receive Date: 20110819
  Receipt Date: 20110810
  Transmission Date: 20111222
  Serious: Yes (Other)
  Sender: FDA-Public Use
  Company Number: US-ASTRAZENECA-2010SE41326

PATIENT
  Age: 49 Year
  Sex: Female
  Weight: 68 kg

DRUGS (13)
  1. CLONIDINE [Concomitant]
     Route: 048
  2. SEROQUEL [Suspect]
     Indication: PSYCHOTIC DISORDER
     Route: 048
     Dates: start: 20070901, end: 20100901
  3. NEURONTIN [Concomitant]
  4. SEROQUEL [Suspect]
     Route: 048
     Dates: end: 20110101
  5. CELEXA [Concomitant]
     Route: 048
  6. SEROQUEL [Suspect]
     Route: 048
     Dates: end: 20110101
  7. XANAX [Concomitant]
     Route: 048
  8. HYDROCHLOROTHIAZIDE [Concomitant]
     Route: 048
  9. QUINAPRIL HCL [Concomitant]
     Route: 048
  10. ZESTRIL [Concomitant]
  11. SEROQUEL [Suspect]
     Route: 048
     Dates: end: 20110101
  12. SEROQUEL [Suspect]
     Indication: DEPRESSION
     Route: 048
     Dates: start: 20070901, end: 20100901
  13. SEROQUEL [Suspect]
     Indication: BIPOLAR DISORDER
     Route: 048
     Dates: start: 20070901, end: 20100901

REACTIONS (8)
  - HEADACHE [None]
  - HEPATITIS C [None]
  - HYPERTENSION [None]
  - DRUG DOSE OMISSION [None]
  - PANIC ATTACK [None]
  - HOT FLUSH [None]
  - SOMNOLENCE [None]
  - FEELING ABNORMAL [None]
